FAERS Safety Report 8896186 (Version 1)
Quarter: 2012Q4

REPORT INFORMATION
  Report Type: Report from Study
  Country: ES (occurrence: ES)
  Receive Date: 20121108
  Receipt Date: 20121108
  Transmission Date: 20130627
  Serious: No
  Sender: FDA-Public Use
  Company Number: ES-OTSUKA-EU-2011-10302

PATIENT
  Sex: Male
  Weight: 160 kg

DRUGS (14)
  1. SAMSCA [Suspect]
     Indication: INAPPROPRIATE ANTIDIURETIC HORMONE SECRETION
     Dosage: 7.5 Mg milligram(s), daily dose
     Route: 048
     Dates: start: 20111027
  2. SAMSCA [Suspect]
     Dosage: 7.5 Mg milligram(s), daily dose
     Route: 048
     Dates: start: 20111028, end: 20111130
  3. SAMSCA [Suspect]
     Dosage: 7.5 Mg milligram(s), unknown
     Route: 048
     Dates: start: 20111130, end: 20120104
  4. SAMSCA [Suspect]
     Dosage: 7.5 Mg milligram(s), unknown
     Route: 048
     Dates: start: 20120104, end: 20120125
  5. SAMSCA [Suspect]
     Dosage: 7.5 Mg milligram(s), tiw
     Route: 048
     Dates: start: 20120125, end: 20120403
  6. SAMSCA [Suspect]
     Dosage: 7.5 Mg milligram(s), daily dose
     Dates: start: 20120404
  7. SAMSCA [Suspect]
     Dosage: 7.5 Mg milligram(s), unknown
     Dates: start: 20120726, end: 20121029
  8. SAMSCA [Suspect]
     Dosage: 7.5 Mg milligram(s), unknown
     Dates: start: 20121030
  9. AMLODIPINE [Concomitant]
     Indication: HYPERTENSION
     Dosage: 5 Mg milligram(s), daily dose
     Route: 048
     Dates: start: 20110808
  10. ASPIRIN [Concomitant]
     Indication: ATRIAL FIBRILLATION
     Dosage: 100 Mg milligram(s), daily dose
     Route: 048
     Dates: start: 20110110
  11. PARACETAMOL [Concomitant]
     Indication: HEADACHE
     Dosage: 500 Mg milligram(s), UNK
     Route: 048
     Dates: start: 20110110, end: 20110815
  12. FUROSEMIDE [Concomitant]
     Dosage: UNK
     Route: 048
     Dates: start: 20110807, end: 20110808
  13. DOXAZOSIN [Concomitant]
     Indication: HYPERTENSION
     Dosage: 4 Mg milligram(s), daily dose
     Route: 048
     Dates: start: 20111207
  14. HIDROFEROL [Concomitant]
     Indication: VITAMIN D DEFICIENCY
     Dosage: 1 DF dosage form, unknown
     Route: 048
     Dates: start: 20120104

REACTIONS (3)
  - Oedema peripheral [Recovered/Resolved]
  - Incorrect drug administration rate [Unknown]
  - Wrong technique in drug usage process [Unknown]
